FAERS Safety Report 24828194 (Version 1)
Quarter: 2025Q1

REPORT INFORMATION
  Report Type: Spontaneous
  Country: SK (occurrence: SK)
  Receive Date: 20250109
  Receipt Date: 20250109
  Transmission Date: 20250409
  Serious: Yes (Other)
  Sender: B BRAUN
  Company Number: SK-B.Braun Medical Inc.-2168758

PATIENT
  Age: 73 Year
  Sex: Male

DRUGS (1)
  1. RINGERS SOLUTION [Suspect]
     Active Substance: CALCIUM CHLORIDE\POTASSIUM CHLORIDE\SODIUM CHLORIDE

REACTIONS (3)
  - Anterior chamber fibrin [Recovered/Resolved]
  - Eye operation [Recovered/Resolved]
  - Vitreous fibrin [Recovered/Resolved]
